FAERS Safety Report 5588554-3 (Version None)
Quarter: 2008Q1

REPORT INFORMATION
  Report Type: 
  Country: None (occurrence: None)
  Receive Date: 20080111
  Receipt Date: 20080107
  Transmission Date: 20080703
  Serious: Yes (Other)
  Sender: FDA-Public Use
  Company Number: US-SANOFI-SYNTHELABO-A03200800039

PATIENT
  Age: 59 Year
  Sex: Female

DRUGS (2)
  1. EXCEDRIN (MIGRAINE) [Interacting]
     Indication: HEADACHE
     Dosage: UNK
     Route: 065
  2. AMBIEN [Suspect]
     Indication: INSOMNIA
     Dosage: 6 TABLETS OVER THE LAST YEAR
     Route: 048

REACTIONS (5)
  - AMNESIA [None]
  - DRUG LEVEL ABOVE THERAPEUTIC [None]
  - HYPERSENSITIVITY [None]
  - IMPAIRED DRIVING ABILITY [None]
  - SOMNAMBULISM [None]
